FAERS Safety Report 5656328-0 (Version None)
Quarter: 2008Q1

REPORT INFORMATION
  Report Type: 
  Country: None (occurrence: None)
  Receive Date: 20080309
  Receipt Date: 20071126
  Transmission Date: 20080703
  Serious: No
  Sender: FDA-Public Use
  Company Number: US-BAYER-200713142BCC

PATIENT
  Age: 85 Year
  Sex: Female
  Weight: 75 kg

DRUGS (5)
  1. ALEVE [Suspect]
     Indication: ARTHRITIS
     Dosage: TOTAL DAILY DOSE: 220 MG  UNIT DOSE: 220 MG
     Route: 048
     Dates: start: 20070801
  2. BLOOD PRESSURE MEDICATION [Concomitant]
  3. IRON [Concomitant]
  4. ASPIRIN [Concomitant]
     Route: 048
  5. CHOLESTEROL MEDICATION [Concomitant]

REACTIONS (1)
  - FLATULENCE [None]
